FAERS Safety Report 9314432 (Version 3)
Quarter: 2013Q4

REPORT INFORMATION
  Report Type: Spontaneous
  Country: US (occurrence: US)
  Receive Date: 20130529
  Receipt Date: 20131025
  Transmission Date: 20140711
  Serious: Yes (Death)
  Sender: FDA-Public Use
  Company Number: US-PFIZER INC-2013162280

PATIENT
  Age: 78 Year
  Sex: Female

DRUGS (3)
  1. XALKORI [Suspect]
     Indication: LUNG NEOPLASM MALIGNANT
     Dosage: 250 MG CAP (2 CAPSULES BY MOUTH DAILY ALTERNATING WITH 1 CAPSULE ONCE DAILY)
     Route: 048
  2. XALKORI [Suspect]
     Indication: BRONCHIAL CARCINOMA
     Dosage: 250 MG CAP (2 CAPSULES BY MOUTH DAILY ALTERNATING WITH 1 CAPSULE ONCE DAILY)
     Route: 048
  3. XALKORI [Suspect]
     Dosage: 200 MG, 2X/DAY
     Route: 048
     Dates: start: 201112

REACTIONS (4)
  - Death [Fatal]
  - Toxicity to various agents [Unknown]
  - Dehydration [Unknown]
  - Drug dose omission [Unknown]
